FAERS Safety Report 7888119-4 (Version None)
Quarter: 2011Q4

REPORT INFORMATION
  Report Type: 
  Country: None (occurrence: None)
  Receive Date: 20111101
  Receipt Date: 20111020
  Transmission Date: 20120403
  Serious: Yes (Other)
  Sender: FDA-Public Use
  Company Number: AUR-APL-2011-05546

PATIENT
  Age: 81 Year
  Sex: Female

DRUGS (7)
  1. RISPERDAL [Concomitant]
  2. NITRO-DUR (GLYCERYL TRINTRTE) [Concomitant]
  3. CALCIUM GLUCONATE [Concomitant]
  4. TICLOPIDINE HYDROCHLORIDE [Concomitant]
  5. OMEPRAZOLE [Concomitant]
  6. ALTIAZEM (DILTIAZEM HYDROCHLORIDE) [Concomitant]
  7. RAMIPRIL [Suspect]
     Indication: HYPERTENSION
     Dosage: 5 MG, 1 D, ORAL
     Route: 048
     Dates: start: 20110401, end: 20111018

REACTIONS (2)
  - PRESYNCOPE [None]
  - HYPOTENSION [None]
